FAERS Safety Report 5289666-4 (Version None)
Quarter: 2007Q2

REPORT INFORMATION
  Report Type: 
  Country: None (occurrence: None)
  Receive Date: 20070406
  Receipt Date: 20070327
  Transmission Date: 20071010
  Serious: No
  Sender: FDA-Public Use
  Company Number: 2007UW06230

PATIENT
  Age: 36 Year
  Sex: Male

DRUGS (7)
  1. SEROQUEL [Suspect]
     Route: 048
     Dates: start: 20061201
  2. ZYPREXA ZYDIS [Suspect]
     Dates: start: 20061201
  3. HALDOL [Suspect]
     Dates: start: 20061201
  4. RISPERDAL [Concomitant]
     Dates: end: 20061201
  5. DEPAKOTE ER [Concomitant]
     Dates: end: 20061201
  6. INDERAL [Concomitant]
     Dates: end: 20061201
  7. CLOZARIL [Concomitant]
     Dates: end: 20061201

REACTIONS (2)
  - AGRANULOCYTOSIS [None]
  - LEUKOPENIA [None]
